FAERS Safety Report 17589331 (Version 2)
Quarter: 2021Q2

REPORT INFORMATION
  Report Type: Spontaneous
  Country: US (occurrence: US)
  Receive Date: 20200327
  Receipt Date: 20210413
  Transmission Date: 20210716
  Serious: No
  Sender: FDA-Public Use
  Company Number: US-ALLERGAN-1932216US

PATIENT
  Sex: Female

DRUGS (2)
  1. VITAMINS [Concomitant]
     Active Substance: VITAMINS
  2. LATISSE [Suspect]
     Active Substance: BIMATOPROST
     Indication: PRODUCT USED FOR UNKNOWN INDICATION
     Dosage: UNK
     Route: 061
     Dates: start: 201907, end: 20190731

REACTIONS (3)
  - Visual impairment [Recovered/Resolved]
  - Vitreous floaters [Recovered/Resolved]
  - Eyelid skin dryness [Recovered/Resolved]

NARRATIVE: CASE EVENT DATE: 20190731
